FAERS Safety Report 14011595 (Version 1)
Quarter: 2017Q3

REPORT INFORMATION
  Report Type: Spontaneous
  Country: US (occurrence: US)
  Receive Date: 20170926
  Receipt Date: 20170926
  Transmission Date: 20171128
  Serious: No
  Sender: FDA-Public Use
  Company Number: US-SUN PHARMACEUTICAL INDUSTRIES LTD-2016US-124096

PATIENT
  Sex: Female
  Weight: 55.79 kg

DRUGS (2)
  1. IBRANCE [Concomitant]
     Active Substance: PALBOCICLIB
     Indication: NEOPLASM MALIGNANT
     Dosage: 125MG CAPSULE BY MOUTH THREE WEEKS ON AND ONE WEEK OFF
     Route: 048
     Dates: start: 201606, end: 20160804
  2. BACTRIM [Suspect]
     Active Substance: SULFAMETHOXAZOLE\TRIMETHOPRIM
     Indication: INFECTION
     Dosage: UNK
     Route: 065

REACTIONS (4)
  - Dehydration [Recovering/Resolving]
  - Nausea [Not Recovered/Not Resolved]
  - Fatigue [Unknown]
  - Constipation [Unknown]
